FAERS Safety Report 10394467 (Version 2)
Quarter: 2014Q4

REPORT INFORMATION
  Report Type: Spontaneous
  Country: IT (occurrence: IT)
  Receive Date: 20140819
  Receipt Date: 20141208
  Transmission Date: 20150528
  Serious: Yes (Death)
  Sender: FDA-Public Use
  Company Number: PHHY2014IT097462

PATIENT
  Age: 67 Year
  Sex: Male

DRUGS (4)
  1. RANITIDINE [Concomitant]
     Active Substance: RANITIDINE\RANITIDINE HYDROCHLORIDE
     Route: 042
     Dates: start: 20140723, end: 20140723
  2. OXALIPLATIN. [Suspect]
     Active Substance: OXALIPLATIN
     Indication: COLON CANCER
     Dosage: 85 MG/M2, ONCE/SINGLE
     Route: 042
     Dates: start: 20140723, end: 20140723
  3. ALOXI [Concomitant]
     Active Substance: PALONOSETRON HYDROCHLORIDE
     Indication: NAUSEA
     Dosage: 250 UG, UNK
     Route: 042
     Dates: start: 20140723, end: 20140723
  4. DEXAMETHASONE 21- PHOSPHATE DISODIUM [Concomitant]
     Indication: ANTIINFLAMMATORY THERAPY
     Dosage: 8 MG, UNK
     Route: 042
     Dates: start: 20140723, end: 20140723

REACTIONS (1)
  - Ventricular fibrillation [Fatal]

NARRATIVE: CASE EVENT DATE: 20140723
